FAERS Safety Report 21743862 (Version 2)
Quarter: 2022Q4

REPORT INFORMATION
  Report Type: Other
  Country: US (occurrence: None)
  Receive Date: 20221217
  Receipt Date: 20221229
  Transmission Date: 20230112
  Serious: Yes (Hospitalization)
  Sender: FDA-Public Use
  Company Number: US-ROCHE-3241004

PATIENT
  Age: 9 Month
  Sex: Male
  Weight: 7.1 kg

DRUGS (1)
  1. EVRYSDI [Suspect]
     Active Substance: RISDIPLAM
     Indication: Spinal muscular atrophy
     Dosage: 0.75 MG/ML?ONGOING: NO
     Route: 048
     Dates: start: 20221027, end: 20221207

REACTIONS (1)
  - Tracheostomy [Recovered/Resolved]
